FAERS Safety Report 7226978-9 (Version None)
Quarter: 2011Q1

REPORT INFORMATION
  Report Type: 
  Country: None (occurrence: None)
  Receive Date: 20110111
  Receipt Date: 20110111
  Transmission Date: 20110831
  Serious: No
  Sender: FDA-Public Use
  Company Number: None

PATIENT
  Sex: Female
  Weight: 88.4514 kg

DRUGS (5)
  1. LOSARTAN POTASSIUM [Suspect]
     Indication: PROPHYLAXIS
     Dosage: 25 MG. 1 DA
     Dates: start: 20101210
  2. LOSARTAN POTASSIUM [Suspect]
     Indication: HYPERTENSIVE NEPHROPATHY
     Dosage: 25 MG. 1 DA
     Dates: start: 20101210
  3. LOSARTAN POTASSIUM [Suspect]
     Indication: PROPHYLAXIS
     Dosage: 25 MG. 1 DA
     Dates: start: 20101211
  4. LOSARTAN POTASSIUM [Suspect]
     Indication: HYPERTENSIVE NEPHROPATHY
     Dosage: 25 MG. 1 DA
     Dates: start: 20101211
  5. COZAAR [Suspect]

REACTIONS (7)
  - ANXIETY [None]
  - OESOPHAGITIS [None]
  - ABDOMINAL PAIN UPPER [None]
  - DYSPNOEA [None]
  - DIARRHOEA [None]
  - FLUSHING [None]
  - DYSPHAGIA [None]
